FAERS Safety Report 13839109 (Version 1)
Quarter: 2017Q3

REPORT INFORMATION
  Report Type: Spontaneous
  Country: US (occurrence: US)
  Receive Date: 20170806
  Receipt Date: 20170806
  Transmission Date: 20171127
  Serious: Yes (Other)
  Sender: FDA-Public Use
  Company Number: None

PATIENT
  Age: 29 Year
  Sex: Male
  Weight: 69.75 kg

DRUGS (3)
  1. MULTIVITAMIN [Concomitant]
     Active Substance: VITAMINS
  2. BUPROPION. [Concomitant]
     Active Substance: BUPROPION
  3. DULOXETINE HYDROCHLORIDE. [Suspect]
     Active Substance: DULOXETINE HYDROCHLORIDE
     Indication: ANXIETY
     Dosage: ?          QUANTITY:1 CAPSULE(S);?
     Route: 048

REACTIONS (7)
  - Vertigo [None]
  - Impaired work ability [None]
  - Nausea [None]
  - Migraine [None]
  - Impaired driving ability [None]
  - Gait disturbance [None]
  - Hyperhidrosis [None]

NARRATIVE: CASE EVENT DATE: 20170730
